FAERS Safety Report 6261665-5 (Version None)
Quarter: 2009Q3

REPORT INFORMATION
  Report Type: 
  Country: None (occurrence: None)
  Receive Date: 20090707
  Receipt Date: 20090707
  Transmission Date: 20100115
  Serious: Yes (Hospitalization)
  Sender: FDA-Public Use
  Company Number: None

PATIENT
  Age: 75 Year
  Sex: Male
  Weight: 80.4 kg

DRUGS (1)
  1. DIGOXIN [Suspect]
     Indication: ATRIAL FLUTTER
     Dosage: 0.25 MG EVERY DAY PO
     Route: 048
     Dates: start: 20070301, end: 20090414

REACTIONS (4)
  - ATRIAL FLUTTER [None]
  - DIZZINESS [None]
  - INTERNATIONAL NORMALISED RATIO INCREASED [None]
  - THERAPEUTIC AGENT TOXICITY [None]
